FAERS Safety Report 8805567 (Version 1)
Quarter: 2012Q4

REPORT INFORMATION
  Report Type: Spontaneous
  Country: GB (occurrence: None)
  Receive Date: 20120917
  Receipt Date: 20120917
  Transmission Date: 20130627
  Serious: Yes (Life-Threatening)
  Sender: FDA-Public Use
  Company Number: APL-2012-00136

PATIENT
  Age: 53 Year
  Sex: Female
  Weight: 65.77 kg

DRUGS (7)
  1. PECFENT [Suspect]
     Indication: SEDATIVE THERAPY
     Dates: start: 20120728, end: 20120728
  2. ASPIRIN [Concomitant]
  3. BISOPROLOL (BISOPROLOL FUMARATE) [Concomitant]
  4. GTN [Concomitant]
  5. MULTIBIONTA (ASCORBIC ACID, DEXPANTHENOL, NICOTINAMIDE, PYRIDOXINE HYDROCHLORIDE, RETINOL PALMITATE, RIBOFLAVIN SODIUM PHOSPHATE, THIAMINE HYDROCHLORIDE, TOCOPHERYL ACETATE) [Concomitant]
  6. RAMIPRIL [Concomitant]
  7. SIMVASTATIN [Concomitant]

REACTIONS (6)
  - Cardiac arrest [None]
  - Arrhythmia [None]
  - Palpitations [None]
  - Hypotension [None]
  - Bradycardia [None]
  - Off label use [None]
